FAERS Safety Report 7118650-0 (Version None)
Quarter: 2010Q4

REPORT INFORMATION
  Report Type: 
  Country: None (occurrence: None)
  Receive Date: 20101123
  Receipt Date: 20101102
  Transmission Date: 20110411
  Serious: Yes (Other)
  Sender: FDA-Public Use
  Company Number: PT-SANOFI-AVENTIS-2010SA066598

PATIENT
  Age: 63 Year
  Sex: Male

DRUGS (4)
  1. PREDNISOLONE [Suspect]
     Indication: RENAL TRANSPLANT
     Route: 048
  2. MYCOPHENOLATE MOFETIL [Suspect]
     Indication: RENAL TRANSPLANT
     Route: 048
  3. FUROSEMIDE [Suspect]
     Indication: RENAL TRANSPLANT
     Route: 048
  4. TACROLIMUS [Suspect]
     Indication: RENAL TRANSPLANT
     Route: 048

REACTIONS (1)
  - FUNGAL INFECTION [None]
